FAERS Safety Report 22382485 (Version 1)
Quarter: 2023Q2

REPORT INFORMATION
  Report Type: Spontaneous
  Country: JP (occurrence: JP)
  Receive Date: 20230530
  Receipt Date: 20230530
  Transmission Date: 20230721
  Serious: Yes (Other)
  Sender: FDA-Public Use
  Company Number: None

PATIENT

DRUGS (2)
  1. VALTREX [Suspect]
     Active Substance: VALACYCLOVIR HYDROCHLORIDE
     Indication: Herpes zoster
     Dosage: 1000 MG, TID
     Dates: start: 20230330, end: 20230405
  2. PILSICAINIDE HYDROCHLORIDE [Concomitant]
     Active Substance: PILSICAINIDE HYDROCHLORIDE
     Dosage: 2 DF

REACTIONS (5)
  - Anaemia macrocytic [Not Recovered/Not Resolved]
  - Pain [Unknown]
  - Palpitations [Unknown]
  - Vertigo [Unknown]
  - Anaemia [Unknown]

NARRATIVE: CASE EVENT DATE: 20230512
